FAERS Safety Report 20431967 (Version 2)
Quarter: 2022Q1

REPORT INFORMATION
  Report Type: Spontaneous
  Country: JP (occurrence: JP)
  Receive Date: 20220204
  Receipt Date: 20220218
  Transmission Date: 20220424
  Serious: Yes (Other)
  Sender: FDA-Public Use
  Company Number: JP-PFIZER INC-202200144577

PATIENT
  Age: 65 Year
  Sex: Male
  Weight: 59.7 kg

DRUGS (2)
  1. LORBRENA [Suspect]
     Active Substance: LORLATINIB
     Indication: Non-small cell lung cancer
     Dosage: 100 MG, DAILY
     Dates: start: 20190906, end: 20191018
  2. LORBRENA [Suspect]
     Active Substance: LORLATINIB
     Dosage: 25 MG, DAILY
     Dates: start: 20191105, end: 20201127

REACTIONS (1)
  - Cardiac failure [Unknown]
